FAERS Safety Report 24685273 (Version 1)
Quarter: 2024Q4

REPORT INFORMATION
  Report Type: Spontaneous
  Country: US (occurrence: None)
  Receive Date: 20241127
  Receipt Date: 20241127
  Transmission Date: 20250115
  Serious: Yes (Other)
  Sender: Public
  Company Number: None

PATIENT
  Age: 76 Year
  Sex: Female

DRUGS (15)
  1. AMBRISENTAN [Suspect]
     Active Substance: AMBRISENTAN
     Indication: Portopulmonary hypertension
     Dosage: FREQUENCY : DAILY;?
     Route: 048
     Dates: start: 20191220
  2. ADEMPAS [Suspect]
     Active Substance: RIOCIGUAT
  3. LEVOTHYROXINE [Concomitant]
     Active Substance: LEVOTHYROXINE
  4. FUROSEMIDE [Concomitant]
     Active Substance: FUROSEMIDE
  5. AZULFIDINE [Concomitant]
     Active Substance: SULFASALAZINE
  6. ONDANSETRON [Concomitant]
     Active Substance: ONDANSETRON
  7. OXYCODONE [Concomitant]
     Active Substance: OXYCODONE
  8. ATORVASTATIN [Concomitant]
     Active Substance: ATORVASTATIN
  9. FERROUS SULFATE [Concomitant]
     Active Substance: FERROUS SULFATE
  10. VITAMIN C [Concomitant]
     Active Substance: ASCORBIC ACID
  11. OMEPRAZOLE [Concomitant]
     Active Substance: OMEPRAZOLE
  12. ATENOLOL [Concomitant]
     Active Substance: ATENOLOL
  13. BUDESONIDE [Concomitant]
     Active Substance: BUDESONIDE
  14. CICLOPIROX TOP SOLN [Concomitant]
  15. NITROGLYCERIN OINT [Concomitant]

REACTIONS (3)
  - Presyncope [None]
  - Hypophagia [None]
  - Dehydration [None]

NARRATIVE: CASE EVENT DATE: 20241101
